FAERS Safety Report 17456218 (Version 1)
Quarter: 2020Q1

REPORT INFORMATION
  Report Type: Report from Study
  Country: MX (occurrence: MX)
  Receive Date: 20200225
  Receipt Date: 20200225
  Transmission Date: 20200409
  Serious: Yes (Other)
  Sender: FDA-Public Use
  Company Number: MX-ROCHE-2549029

PATIENT

DRUGS (2)
  1. OSELTAMIVIR [Suspect]
     Active Substance: OSELTAMIVIR
     Indication: INFLUENZA
  2. OSELTAMIVIR [Suspect]
     Active Substance: OSELTAMIVIR
     Indication: H1N1 INFLUENZA
     Route: 048

REACTIONS (4)
  - Hypersensitivity [Unknown]
  - Gastritis [Unknown]
  - Depression [Unknown]
  - Anxiety [Unknown]
